FAERS Safety Report 6725543-7 (Version None)
Quarter: 2010Q2

REPORT INFORMATION
  Report Type: 
  Country: None (occurrence: None)
  Receive Date: 20100514
  Receipt Date: 20100506
  Transmission Date: 20101027
  Serious: Yes (Other)
  Sender: FDA-Public Use
  Company Number: JP-ROCHE-679211

PATIENT
  Age: 60 Year
  Sex: Male

DRUGS (3)
  1. CELLCEPT [Suspect]
     Indication: PROPHYLAXIS AGAINST TRANSPLANT REJECTION
     Route: 048
  2. CYCLOSPORINE [Concomitant]
  3. METHYLPREDNISOLONE 4MG TAB [Concomitant]
     Dosage: DOSE FORM: UNCERTAINTY
     Route: 065

REACTIONS (1)
  - PROSTATE CANCER STAGE II [None]
